FAERS Safety Report 9421210 (Version 2)
Quarter: 2013Q3

REPORT INFORMATION
  Report Type: Spontaneous
  Country: IR (occurrence: None)
  Receive Date: 20130717
  Receipt Date: 20130729
  Transmission Date: 20140515
  Serious: Yes (Death, Other)
  Sender: FDA-Public Use
  Company Number: 0240102

PATIENT
  Age: 62 Year
  Sex: Male

DRUGS (2)
  1. TACHOSIL (HUMAN FIBRINOGEN, HUMAN THROMBIN) (POULTICE OR PATCH) (HUMAN FIBRINOGEN, HUMAN THROMBIN) [Suspect]
     Dosage: UNK ( A MEDIUM SIZE)
     Dates: start: 20130608
  2. ANTIBIOTICS (ANTIBIOTICS) [Concomitant]

REACTIONS (3)
  - Pancreatic leak [None]
  - Drug ineffective [None]
  - Pancreatic pseudocyst [None]
